FAERS Safety Report 9089624 (Version 3)
Quarter: 2014Q1

REPORT INFORMATION
  Report Type: Spontaneous
  Country: US (occurrence: US)
  Receive Date: 20130131
  Receipt Date: 20140115
  Transmission Date: 20141002
  Serious: Yes (Hospitalization)
  Sender: FDA-Public Use
  Company Number: US-PFIZER INC-2013032131

PATIENT
  Age: 65 Year
  Sex: Male

DRUGS (9)
  1. BOSULIF [Suspect]
     Indication: CHRONIC MYELOID LEUKAEMIA
     Dosage: 500 MG, 1X/DAY
     Route: 048
     Dates: start: 201301, end: 20130118
  2. ALBUTEROL [Concomitant]
  3. ATORVASTATIN [Concomitant]
  4. LASIX [Concomitant]
  5. CITALOPRAM [Concomitant]
  6. GLYCILAX [Concomitant]
  7. METOPROLOL [Concomitant]
  8. KCL [Concomitant]
  9. ASPIRIN ^MONOT^ [Concomitant]

REACTIONS (4)
  - Cardiac failure congestive [Recovered/Resolved]
  - Emphysema [Recovered/Resolved]
  - Chronic obstructive pulmonary disease [Recovered/Resolved]
  - Neck pain [Unknown]
